FAERS Safety Report 8397107-3 (Version None)
Quarter: 2012Q2

REPORT INFORMATION
  Report Type: 
  Country: None (occurrence: None)
  Receive Date: 20120530
  Receipt Date: 20120523
  Transmission Date: 20120825
  Serious: Yes (Hospitalization, Other)
  Sender: FDA-Public Use
  Company Number: FR-ABBOTT-11P-056-0850467-00

PATIENT
  Sex: Female
  Weight: 75 kg

DRUGS (5)
  1. ACTONEL [Concomitant]
     Route: 048
  2. METHOTREXATE [Concomitant]
     Indication: RHEUMATOID ARTHRITIS
     Route: 048
     Dates: start: 20010101
  3. FOLIC ACID [Concomitant]
     Indication: RHEUMATOID ARTHRITIS
     Route: 048
  4. VITAMIN D [Concomitant]
     Indication: RHEUMATOID ARTHRITIS
     Route: 048
  5. HUMIRA [Suspect]
     Indication: RHEUMATOID ARTHRITIS
     Route: 058
     Dates: start: 20100326, end: 20110830

REACTIONS (10)
  - SWELLING FACE [None]
  - LIP SWELLING [None]
  - DYSPHAGIA [None]
  - OEDEMA GENITAL [None]
  - OEDEMA PERIPHERAL [None]
  - RASH [None]
  - PURPURA [None]
  - ANGIOEDEMA [None]
  - URTICARIA [None]
  - PRURITUS [None]
